FAERS Safety Report 9268818 (Version 1)
Quarter: 2013Q2

REPORT INFORMATION
  Report Type: Spontaneous
  Country: BR (occurrence: BR)
  Receive Date: 20130502
  Receipt Date: 20130502
  Transmission Date: 20140414
  Serious: Yes (Hospitalization, Other)
  Sender: FDA-Public Use
  Company Number: BR-AMGEN-BRASP2013030402

PATIENT
  Age: 69 Year
  Sex: Male

DRUGS (2)
  1. ENBREL [Suspect]
     Indication: PSORIASIS
     Dosage: 50 MG, ONCE WEEKLY
     Dates: start: 2011, end: 20121231
  2. OMEPRAZOLE [Concomitant]
     Dosage: UNK

REACTIONS (2)
  - Weight decreased [Recovering/Resolving]
  - Appendicitis [Recovered/Resolved]
